FAERS Safety Report 20009298 (Version 1)
Quarter: 2021Q4

REPORT INFORMATION
  Report Type: Report from Study
  Country: EG (occurrence: EG)
  Receive Date: 20211028
  Receipt Date: 20211028
  Transmission Date: 20220303
  Serious: Yes (Other)
  Sender: FDA-Public Use
  Company Number: EG-NOVARTISPH-NVSC2021EG237918

PATIENT
  Age: 47 Year
  Sex: Female

DRUGS (8)
  1. TACROLIMUS [Suspect]
     Active Substance: TACROLIMUS
     Indication: Immunosuppression
     Dosage: 6 DF, QD (3 CAPSULES IN THE MORNING AND 3 CAPSULES AT NIGHT)
     Route: 065
     Dates: start: 201911
  2. TACROLIMUS [Suspect]
     Active Substance: TACROLIMUS
     Dosage: 7 DF, QD (4 CAPSULES IN THE MORNING AND 3 CAPSULES AT NIGHT)
     Route: 065
     Dates: start: 20210630
  3. CALCIUM\VITAMIN D [Concomitant]
     Active Substance: CALCIUM\VITAMIN D
     Indication: Mineral supplementation
     Dosage: 2 DF, QD (START 2 YEARS AGO)
     Route: 065
  4. MARCAL [Concomitant]
     Indication: Mineral supplementation
     Dosage: 2 DF, QD
     Route: 048
  5. NEXIUM [Concomitant]
     Active Substance: ESOMEPRAZOLE MAGNESIUM
     Indication: Abdominal pain upper
     Dosage: 1 DF, QD (BEFORE BREAKFAST)
     Route: 048
     Dates: start: 2016
  6. EZETIMIBE\SIMVASTATIN [Concomitant]
     Active Substance: EZETIMIBE\SIMVASTATIN
     Indication: Blood triglycerides decreased
     Dosage: UNK, Q2W
     Route: 048
     Dates: start: 2016
  7. ERYTHROPOIETIN [Concomitant]
     Active Substance: ERYTHROPOIETIN
     Indication: Anaemia
     Dosage: 2 DF, QW
     Route: 058
     Dates: start: 2016
  8. FERROGLOBIN [Concomitant]
     Indication: Anaemia
     Dosage: UNK, QD (AFTER BREAKFAST)
     Route: 048
     Dates: start: 2016

REACTIONS (9)
  - Blood creatinine increased [Recovering/Resolving]
  - Anaemia [Unknown]
  - Hypophagia [Not Recovered/Not Resolved]
  - Food aversion [Not Recovered/Not Resolved]
  - Fluid retention [Recovered/Resolved]
  - Fatigue [Recovering/Resolving]
  - Hypertension [Recovered/Resolved]
  - Off label use [Unknown]
  - Therapeutic product ineffective for unapproved indication [Not Recovered/Not Resolved]

NARRATIVE: CASE EVENT DATE: 20191101
